FAERS Safety Report 5953251-9 (Version None)
Quarter: 2008Q4

REPORT INFORMATION
  Report Type: 
  Country: None (occurrence: None)
  Receive Date: 20081114
  Receipt Date: 20081106
  Transmission Date: 20090506
  Serious: Yes (Other)
  Sender: FDA-Public Use
  Company Number: PHHY2008BR23362

PATIENT
  Sex: Female
  Weight: 80 kg

DRUGS (8)
  1. GALVUS [Suspect]
     Indication: DIABETES MELLITUS
     Dosage: 50 MG, BID
     Route: 048
     Dates: start: 20080919
  2. GALVUS MET COMBIPACK [Suspect]
     Indication: TYPE 2 DIABETES MELLITUS
     Dosage: 850/50 MG/BID
     Dates: start: 20080901
  3. DIAMICRON [Concomitant]
     Indication: DIABETES MELLITUS
     Dosage: 30 MG, UNK
     Route: 048
     Dates: start: 20080919
  4. ATENOLOL [Concomitant]
     Indication: HYPERTENSION
     Dosage: 2 TABLETS (25 MG) PER DAY
     Route: 048
     Dates: start: 20040101
  5. LOSARTAN POTASSIUM [Concomitant]
     Indication: HYPERTENSION
     Dosage: 2 TABLETS (50 MG) PER DAY
     Route: 048
     Dates: start: 20040101
  6. CAPTOPRIL [Concomitant]
     Indication: HYPERTENSION
     Dosage: UNK
  7. LIPITOR [Concomitant]
     Indication: BLOOD CHOLESTEROL
     Dosage: HALF TABLET AT NIGHT
     Route: 048
     Dates: start: 20080901
  8. LANTUS [Concomitant]
     Indication: TYPE 2 DIABETES MELLITUS
     Dosage: UNK
     Route: 058
     Dates: start: 20080901

REACTIONS (3)
  - ABDOMINAL PAIN UPPER [None]
  - BLOOD GLUCOSE FLUCTUATION [None]
  - HYPERGLYCAEMIA [None]
